FAERS Safety Report 8322777-5 (Version None)
Quarter: 2012Q2

REPORT INFORMATION
  Report Type: 
  Country: None (occurrence: None)
  Receive Date: 20120430
  Receipt Date: 20120423
  Transmission Date: 20120825
  Serious: Yes (Hospitalization)
  Sender: FDA-Public Use
  Company Number: US-BAYER-2012-022396

PATIENT
  Age: 77 Year
  Sex: Male
  Weight: 98.866 kg

DRUGS (7)
  1. SIMVASTATIN [Concomitant]
     Indication: BLOOD CHOLESTEROL INCREASED
     Dosage: 40 MG, QD
  2. BETASERON [Suspect]
     Dosage: 8 MIU, QOD
     Route: 058
     Dates: end: 20110901
  3. FELODIPINE [Concomitant]
     Indication: HYPERTENSION
     Dosage: 5 MG, QD
  4. BETASERON [Suspect]
     Dosage: 4 MIU, QOD WEEKS 3-4
     Route: 058
  5. BETASERON [Suspect]
     Dosage: 6 MIU, QOD WEEKS 5-6
     Route: 058
  6. BETASERON [Suspect]
     Indication: MULTIPLE SCLEROSIS
     Dosage: 2 MIU, QOD WEEKS 1-2
     Route: 058
     Dates: start: 20110601
  7. COPAXONE [Concomitant]

REACTIONS (3)
  - WHEEZING [None]
  - PULMONARY OEDEMA [None]
  - OEDEMA [None]
